FAERS Safety Report 6181170-4 (Version None)
Quarter: 2009Q2

REPORT INFORMATION
  Report Type: 
  Country: None (occurrence: None)
  Receive Date: 20090504
  Receipt Date: 20090504
  Transmission Date: 20091009
  Serious: Yes (Hospitalization)
  Sender: FDA-Public Use
  Company Number: None

PATIENT
  Age: 64 Year
  Sex: Female
  Weight: 70.3075 kg

DRUGS (1)
  1. SUCCINYLCHOLINE CHLORIDE [Suspect]

REACTIONS (3)
  - CHEST PAIN [None]
  - IMMOBILE [None]
  - MUSCLE DISORDER [None]
